FAERS Safety Report 5395237-1 (Version None)
Quarter: 2007Q3

REPORT INFORMATION
  Report Type: 
  Country: None (occurrence: None)
  Receive Date: 20070724
  Receipt Date: 20070710
  Transmission Date: 20080115
  Serious: Yes (Hospitalization)
  Sender: FDA-Public Use
  Company Number: US-ELI_LILLY_AND_COMPANY-US200706003169

PATIENT
  Age: 56 Year
  Sex: Female

DRUGS (4)
  1. FORTEO [Suspect]
     Indication: OSTEOPOROSIS
     Dosage: 20 UG, DAILY (1/D)
     Dates: start: 20070201
  2. AMBIEN [Concomitant]
     Dosage: 6.25 UNK, AS NEEDED
  3. CITRACAL + D [Concomitant]
  4. EFFEXOR [Concomitant]
     Dosage: 150 MG, DAILY (1/D)

REACTIONS (1)
  - ADRENAL ADENOMA [None]
